FAERS Safety Report 19073062 (Version 2)
Quarter: 2021Q2

REPORT INFORMATION
  Report Type: Spontaneous
  Country: US (occurrence: US)
  Receive Date: 20210330
  Receipt Date: 20210407
  Transmission Date: 20210717
  Serious: No
  Sender: FDA-Public Use
  Company Number: US-MYLANLABS-2021M1017294

PATIENT
  Age: 70 Year
  Sex: Female

DRUGS (10)
  1. CRESTOR [Concomitant]
     Active Substance: ROSUVASTATIN CALCIUM
     Dosage: UNK
  2. SYNTHROID [Concomitant]
     Active Substance: LEVOTHYROXINE SODIUM
     Dosage: UNK
  3. VASCEPA [Concomitant]
     Active Substance: ICOSAPENT ETHYL
     Dosage: UNK
  4. REPATHA [Concomitant]
     Active Substance: EVOLOCUMAB
     Dosage: UNK
  5. METOPROLOL TARTRATE TABLETS USP [Suspect]
     Active Substance: METOPROLOL TARTRATE
     Indication: HYPERTENSION
     Dosage: 1 TABLET TWICE A DAY
     Route: 048
  6. NITROGLYCERIN. [Concomitant]
     Active Substance: NITROGLYCERIN
     Dosage: UNK
  7. DIOVAN [Concomitant]
     Active Substance: VALSARTAN
     Dosage: UNK
  8. METFORMIN [Concomitant]
     Active Substance: METFORMIN HYDROCHLORIDE
     Dosage: UNK
  9. ASPIRIN                            /00002701/ [Concomitant]
     Active Substance: ASPIRIN
     Dosage: UNK
  10. METOPROLOL TARTRATE TABLETS USP [Suspect]
     Active Substance: METOPROLOL TARTRATE
     Indication: BLOOD PRESSURE MEASUREMENT
     Dosage: 50 MILLIGRAM, BID

REACTIONS (2)
  - Extra dose administered [Recovered/Resolved]
  - Product dispensing error [Recovered/Resolved]

NARRATIVE: CASE EVENT DATE: 202004
